FAERS Safety Report 7232719-1 (Version None)
Quarter: 2011Q1

REPORT INFORMATION
  Report Type: 
  Country: None (occurrence: None)
  Receive Date: 20110110
  Receipt Date: 20110104
  Transmission Date: 20110831
  Serious: Yes (Hospitalization)
  Sender: FDA-Public Use
  Company Number: WAES 1101USA00155

PATIENT
  Age: 88 Year
  Sex: Female

DRUGS (6)
  1. CALCIUM (UNSPECIFIED) (+) CHOLECALCIFEROL [Concomitant]
  2. POTASSIUM CHLORIDE [Concomitant]
  3. FOSAMAX [Suspect]
     Indication: BACK PAIN
     Dosage: 70MG/WKY, PO
     Route: 048
     Dates: start: 20090209
  4. FOSAMAX [Suspect]
     Indication: OSTEOPOROSIS
     Dosage: 70MG/WKY, PO
     Route: 048
     Dates: start: 20090209
  5. LISINOPRIL [Concomitant]
  6. FUROSEMIDE [Concomitant]

REACTIONS (4)
  - OSTEOPOROTIC FRACTURE [None]
  - CONTUSION [None]
  - THORACIC VERTEBRAL FRACTURE [None]
  - FALL [None]
